FAERS Safety Report 16543012 (Version 1)
Quarter: 2019Q3

REPORT INFORMATION
  Report Type: Spontaneous
  Country: SE (occurrence: SE)
  Receive Date: 20190709
  Receipt Date: 20190709
  Transmission Date: 20191004
  Serious: Yes (Other)
  Sender: FDA-Public Use
  Company Number: SE-TEVA-2019-SE-1074213

PATIENT
  Age: 69 Year
  Sex: Female

DRUGS (3)
  1. ATROPINE. [Concomitant]
     Active Substance: ATROPINE
  2. OXALIPLATIN. [Suspect]
     Active Substance: OXALIPLATIN
     Indication: PANCREATIC CARCINOMA
     Dosage: STRENGTH 125.12 ?DOSAGE 80PERCENT
     Route: 042
  3. IRINOTECAN [Suspect]
     Active Substance: IRINOTECAN
     Indication: PANCREATIC CARCINOMA
     Dosage: STRENGTH 264.96 ?DOSAGE 80PERCENT
     Route: 042

REACTIONS (2)
  - Muscle spasms [Unknown]
  - Dysarthria [Unknown]

NARRATIVE: CASE EVENT DATE: 20190429
